FAERS Safety Report 11274008 (Version 1)
Quarter: 2015Q3

REPORT INFORMATION
  Report Type: Spontaneous
  Country: RU (occurrence: RU)
  Receive Date: 20150715
  Receipt Date: 20150715
  Transmission Date: 20151125
  Serious: Yes (Other)
  Sender: FDA-Public Use
  Company Number: RU-BAYER-2015-374067

PATIENT
  Age: 68 Year
  Sex: Female

DRUGS (2)
  1. NEXAVAR [Suspect]
     Active Substance: SORAFENIB
     Indication: HEPATIC CANCER
     Dosage: UNK
  2. SUNITINIB [Concomitant]
     Active Substance: SUNITINIB
     Indication: HEPATIC CANCER
     Dosage: 50 MG (4 + 2)

REACTIONS (1)
  - Hepatic cancer [None]
